FAERS Safety Report 7739940-4 (Version None)
Quarter: 2011Q3

REPORT INFORMATION
  Report Type: 
  Country: None (occurrence: None)
  Receive Date: 20110909
  Receipt Date: 20110907
  Transmission Date: 20111222
  Serious: Yes (Other)
  Sender: FDA-Public Use
  Company Number: PHHY2011DE79660

PATIENT
  Sex: Female
  Weight: 60 kg

DRUGS (3)
  1. ZOLEDRONOC ACID [Suspect]
     Dosage: 5 MG, ONCE YEARLY
     Route: 042
     Dates: start: 20100421
  2. VITAMIN D [Concomitant]
     Indication: OSTEOPOROSIS
     Dosage: 800 IU, UNK
  3. CALCIUM CARBONATE [Concomitant]
     Indication: OSTEOPOROSIS
     Dosage: 1 G, UNK

REACTIONS (1)
  - OSTEOPOROTIC FRACTURE [None]
